FAERS Safety Report 24438100 (Version 1)
Quarter: 2024Q4

REPORT INFORMATION
  Report Type: Spontaneous
  Country: US (occurrence: None)
  Receive Date: 20241014
  Receipt Date: 20241014
  Transmission Date: 20250115
  Serious: Yes (Hospitalization)
  Sender: Public
  Company Number: None

PATIENT
  Age: 78 Year
  Sex: Male

DRUGS (1)
  1. XDEMVY [Suspect]
     Active Substance: LOTILANER
     Indication: Blepharitis
     Dosage: OTHER FREQUENCY : BID FOR 6 WEEKS;?FREQ: INSTILL ONE DROP INTO BOTH EYES TWICE DAILY FOR 6 WEEKS?
     Route: 047
     Dates: start: 20240805

REACTIONS (2)
  - Impaired quality of life [None]
  - Dysphagia [None]

NARRATIVE: CASE EVENT DATE: 20241002
